FAERS Safety Report 17471783 (Version 1)
Quarter: 2020Q1

REPORT INFORMATION
  Report Type: Report from Study
  Country: US (occurrence: US)
  Receive Date: 20200228
  Receipt Date: 20200228
  Transmission Date: 20200409
  Serious: Yes (Other)
  Sender: FDA-Public Use
  Company Number: US-GILEAD-2019-0433531

PATIENT
  Age: 62 Year
  Sex: Female

DRUGS (1)
  1. AMBRISENTAN [Suspect]
     Active Substance: AMBRISENTAN
     Indication: PRODUCT USED FOR UNKNOWN INDICATION
     Dosage: 5 MG, QD
     Route: 065

REACTIONS (8)
  - Weight increased [Unknown]
  - Back pain [Not Recovered/Not Resolved]
  - Road traffic accident [Recovered/Resolved]
  - Immobile [Not Recovered/Not Resolved]
  - Swelling [Unknown]
  - Neck pain [Not Recovered/Not Resolved]
  - Shoulder operation [Recovered/Resolved]
  - Limb injury [Not Recovered/Not Resolved]

NARRATIVE: CASE EVENT DATE: 201910
